FAERS Safety Report 10576560 (Version 2)
Quarter: 2018Q2

REPORT INFORMATION
  Report Type: Spontaneous
  Country: DE (occurrence: DE)
  Receive Date: 20141111
  Receipt Date: 20180528
  Transmission Date: 20180711
  Serious: Yes (Death, Other)
  Sender: FDA-Public Use
  Company Number: DE-AMGEN-DEUSP2014085890

PATIENT
  Age: 63 Year
  Sex: Female
  Weight: 59 kg

DRUGS (8)
  1. LETROZOL [Concomitant]
     Active Substance: LETROZOLE
     Dosage: UNK
     Dates: start: 20080301, end: 20130201
  2. AFINITOR [Suspect]
     Active Substance: EVEROLIMUS
     Indication: BREAST CANCER
     Dosage: 10 MG, QD
     Route: 048
     Dates: start: 20131104, end: 20140128
  3. AFINITOR [Suspect]
     Active Substance: EVEROLIMUS
     Indication: BREAST CANCER METASTATIC
  4. EXEMESTAN [Concomitant]
     Active Substance: EXEMESTANE
     Indication: BREAST CANCER METASTATIC
  5. FULVESTRANT. [Concomitant]
     Active Substance: FULVESTRANT
     Dosage: UNK
     Dates: start: 20121201, end: 20130401
  6. ANASTROZOL [Concomitant]
     Active Substance: ANASTROZOLE
     Dosage: UNK
     Dates: start: 20080310, end: 20121001
  7. XGEVA [Suspect]
     Active Substance: DENOSUMAB
     Indication: PROPHYLAXIS
     Dosage: 120 MG, QMO
     Route: 058
     Dates: start: 20130527, end: 20131213
  8. EXEMESTAN [Concomitant]
     Active Substance: EXEMESTANE
     Indication: BREAST CANCER
     Dosage: 25 MG, QD
     Dates: start: 20131104, end: 20140224

REACTIONS (8)
  - Pain in jaw [Recovered/Resolved]
  - Malignant neoplasm progression [Fatal]
  - Bacterial infection [Not Recovered/Not Resolved]
  - Infection [Not Recovered/Not Resolved]
  - Mucosal inflammation [Not Recovered/Not Resolved]
  - Stomatitis [Not Recovered/Not Resolved]
  - Neck pain [Recovered/Resolved]
  - Osteonecrosis of jaw [Recovering/Resolving]

NARRATIVE: CASE EVENT DATE: 20131125
